FAERS Safety Report 19075262 (Version 1)
Quarter: 2021Q1

REPORT INFORMATION
  Report Type: Spontaneous
  Country: US (occurrence: US)
  Receive Date: 20210330
  Receipt Date: 20210330
  Transmission Date: 20210420
  Serious: No
  Sender: FDA-Public Use
  Company Number: US-ROCHE-2551964

PATIENT
  Sex: Male
  Weight: 61.29 kg

DRUGS (2)
  1. MEDICAL MARIJUANA [Concomitant]
     Active Substance: CANNABIS SATIVA SUBSP. INDICA TOP
     Dosage: SMOKES MOSTLY AT HOME NOT OFTEN ;ONGOING: YES
  2. ERIVEDGE [Suspect]
     Active Substance: VISMODEGIB
     Indication: BASAL CELL CARCINOMA
     Dosage: ONGOING: NO
     Route: 048
     Dates: start: 2014

REACTIONS (5)
  - Muscle spasms [Recovered/Resolved]
  - Diarrhoea [Unknown]
  - Radiotherapy [Recovered/Resolved]
  - Product dose omission issue [Unknown]
  - Emotional distress [Unknown]
